FAERS Safety Report 20970167 (Version 2)
Quarter: 2024Q1

REPORT INFORMATION
  Report Type: Spontaneous
  Country: US (occurrence: US)
  Receive Date: 20220616
  Receipt Date: 20240312
  Transmission Date: 20240410
  Serious: No
  Sender: FDA-Public Use
  Company Number: US-SA-SAC20220603000522

PATIENT
  Age: 19 Year
  Sex: Male
  Weight: 93.8 kg

DRUGS (1)
  1. FABRAZYME [Suspect]
     Active Substance: AGALSIDASE BETA
     Indication: Fabry^s disease
     Dosage: 85 MG, QOW
     Route: 042
     Dates: start: 202201

REACTIONS (3)
  - Lysosomal storage disorder [Unknown]
  - Condition aggravated [Unknown]
  - Weight increased [Unknown]
